FAERS Safety Report 9149288 (Version 1)
Quarter: 2013Q1

REPORT INFORMATION
  Report Type: Spontaneous
  Country: ES (occurrence: None)
  Receive Date: 20130131
  Receipt Date: 20130131
  Transmission Date: 20140127
  Serious: Yes (Other)
  Sender: FDA-Public Use
  Company Number: FK201300178

PATIENT
  Age: 44 Year
  Sex: Female

DRUGS (4)
  1. DEXAMETHASONE SODIUM PHOSPHATE [Suspect]
     Indication: PROPHYLAXIS OF NAUSEA AND VOMITING
     Dosage: TWO CYCLES,INTRAVENOUS
     Route: 042
  2. FLUOROURACIL (FLUOROURACIL) [Concomitant]
  3. EPIRUBICIN (EPIRUBICIN) [Concomitant]
  4. CYCLOPHOSPHAMIDE (CYCLOPHOSPHAMIDE) [Concomitant]

REACTIONS (3)
  - Chorioretinopathy [None]
  - Scotoma [None]
  - Retinal detachment [None]
